FAERS Safety Report 4845391-2 (Version None)
Quarter: 2005Q4

REPORT INFORMATION
  Report Type: 
  Country: None (occurrence: None)
  Receive Date: 20051125
  Receipt Date: 20051114
  Transmission Date: 20060501
  Serious: Yes (Life-Threatening, Hospitalization)
  Sender: FDA-Public Use
  Company Number: 2005153789

PATIENT
  Age: 66 Year
  Sex: Male

DRUGS (1)
  1. UNASYN [Suspect]
     Indication: ILL-DEFINED DISORDER
     Dosage: 6 GRAM, INTRAVENOUS
     Route: 042
     Dates: start: 20050929, end: 20051002

REACTIONS (1)
  - INTERSTITIAL LUNG DISEASE [None]
